FAERS Safety Report 9327564 (Version 2)
Quarter: 2013Q3

REPORT INFORMATION
  Report Type: Spontaneous
  Country: US (occurrence: US)
  Receive Date: 20130604
  Receipt Date: 20130708
  Transmission Date: 20140515
  Serious: No
  Sender: FDA-Public Use
  Company Number: US-AMGEN-USASP2013038447

PATIENT
  Age: 14 Year
  Sex: Female
  Weight: 78.5 kg

DRUGS (15)
  1. METHOTREXATE [Concomitant]
     Dosage: 22.5 MG, QWK
     Route: 058
     Dates: start: 20121011
  2. ADDERALL [Concomitant]
     Dosage: UNK
  3. CATAPRES                           /00171101/ [Concomitant]
     Dosage: UNK
  4. LACTULOSE [Concomitant]
     Dosage: UNK
  5. VITAMIN D3 [Concomitant]
     Dosage: UNK
  6. FLOVENT [Concomitant]
     Dosage: UNK
  7. ALBUTEROL                          /00139501/ [Concomitant]
     Dosage: UNK
  8. LAMICTAL [Concomitant]
     Dosage: UNK
  9. CALCIUM [Concomitant]
     Dosage: UNK
  10. TYLENOL                            /00020001/ [Concomitant]
     Dosage: UNK
  11. ENBREL [Suspect]
     Indication: JUVENILE IDIOPATHIC ARTHRITIS
     Dosage: 50 MG, QWK
     Route: 058
     Dates: start: 20130509, end: 20130517
  12. SENNA                              /00142201/ [Concomitant]
     Dosage: UNK
  13. COLACE [Concomitant]
     Dosage: UNK
  14. CYMBALTA [Concomitant]
     Dosage: UNK
  15. FLEXERIL                           /00428402/ [Concomitant]
     Dosage: 5 MG, QD
     Route: 048
     Dates: start: 20120131

REACTIONS (4)
  - Pruritus [Recovered/Resolved]
  - Dyspnoea [Recovered/Resolved]
  - Chest discomfort [Recovered/Resolved]
  - Erythema [Recovered/Resolved]
